FAERS Safety Report 9131044 (Version 1)
Quarter: 2013Q1

REPORT INFORMATION
  Report Type: Spontaneous
  Country: FR (occurrence: FR)
  Receive Date: 20130301
  Receipt Date: 20130301
  Transmission Date: 20140127
  Serious: Yes (Hospitalization, Other)
  Sender: FDA-Public Use
  Company Number: FR-JNJFOC-20130211983

PATIENT
  Age: 75 Year
  Sex: Female

DRUGS (7)
  1. DOXORUBICIN HYDROCHLORIDE (CAELYX) [Suspect]
     Indication: PRODUCT USED FOR UNKNOWN INDICATION
     Route: 042
     Dates: start: 201101, end: 201110
  2. TAXOL [Suspect]
     Indication: PRODUCT USED FOR UNKNOWN INDICATION
     Route: 042
     Dates: start: 20091125, end: 201101
  3. TAXOL [Suspect]
     Indication: PRODUCT USED FOR UNKNOWN INDICATION
     Dosage: 6 COURSES, (5 MONTHS OF TREATMENT)
     Route: 042
     Dates: start: 200906, end: 20091125
  4. CARBOPLATIN [Suspect]
     Indication: PRODUCT USED FOR UNKNOWN INDICATION
     Dosage: 2 YEARS OF TREATMENT
     Route: 042
     Dates: start: 200906, end: 201110
  5. GEMZAR [Suspect]
     Indication: PRODUCT USED FOR UNKNOWN INDICATION
     Dosage: 4 MONTHS OF TREATMENT
     Route: 042
     Dates: start: 201202, end: 201206
  6. GEMZAR [Suspect]
     Indication: PRODUCT USED FOR UNKNOWN INDICATION
     Route: 042
     Dates: start: 20120808, end: 20120822
  7. OXALIPLATIN [Concomitant]
     Route: 065
     Dates: start: 201208

REACTIONS (2)
  - Disease progression [Unknown]
  - Myelodysplastic syndrome [Not Recovered/Not Resolved]
